FAERS Safety Report 11364483 (Version 1)
Quarter: 2015Q3

REPORT INFORMATION
  Report Type: Spontaneous
  Country: GB (occurrence: GB)
  Receive Date: 20150811
  Receipt Date: 20150811
  Transmission Date: 20151125
  Serious: Yes (Disabling, Other)
  Sender: FDA-Public Use
  Company Number: GB-ALLERGAN-1508666US

PATIENT
  Age: 47 Year
  Sex: Female
  Weight: 4.54 kg

DRUGS (2)
  1. BOTOX [Suspect]
     Active Substance: ONABOTULINUMTOXINA
     Dosage: UNK, SINGLE
     Route: 030
     Dates: start: 2013, end: 2013
  2. BOTOX [Suspect]
     Active Substance: ONABOTULINUMTOXINA
     Indication: SKIN WRINKLING
     Dosage: UNK, SINGLE
     Route: 030
     Dates: start: 201307, end: 201307

REACTIONS (14)
  - Ear discomfort [Unknown]
  - Musculoskeletal pain [Unknown]
  - Dizziness [Unknown]
  - Paraesthesia [Unknown]
  - Pain [Unknown]
  - Vision blurred [Unknown]
  - Dysarthria [Unknown]
  - Eructation [Unknown]
  - Crepitations [Unknown]
  - Pain of skin [Unknown]
  - Neuralgia [Unknown]
  - Head discomfort [Unknown]
  - Malaise [Unknown]
  - Amnesia [Unknown]

NARRATIVE: CASE EVENT DATE: 20130818
